FAERS Safety Report 4577487-7 (Version None)
Quarter: 2005Q1

REPORT INFORMATION
  Report Type: 
  Country: None (occurrence: None)
  Receive Date: 20050208
  Receipt Date: 20050125
  Transmission Date: 20050727
  Serious: Yes (Death, Hospitalization)
  Sender: FDA-Public Use
  Company Number: 2004097640

PATIENT
  Age: 82 Year
  Sex: Female
  Weight: 80 kg

DRUGS (8)
  1. CELEBREX [Suspect]
     Indication: PAIN
     Dosage: 400 MG (200 MG, 2 IN 1 D), ORAL
     Route: 048
     Dates: start: 20010412
  2. ACETYLSALICYLIC ACID SRT [Suspect]
     Indication: PROPHYLAXIS
     Dosage: (325 MG, INTERVAL:  EVERY OLTHER DAY), ORAL
     Route: 048
     Dates: start: 20001027
  3. PREDNISONE [Suspect]
     Indication: MUSCULOSKELETAL PAIN
     Dosage: 10 MG (10 MG), ORAL
     Route: 048
     Dates: start: 20001027
  4. PREDNISONE [Suspect]
     Indication: POLYMYALGIA
     Dosage: 10 MG (10 MG), ORAL
     Route: 048
     Dates: start: 20001027
  5. HYDROXYZINE HCL [Concomitant]
  6. CODEINE PHOSPHATE (CODEINE PHOSPHATE) [Concomitant]
  7. SENNA FRUIT (SENNA FRUIT) [Concomitant]
  8. ACETAMINOPHEN [Concomitant]

REACTIONS (2)
  - CREATININE RENAL CLEARANCE DECREASED [None]
  - GASTROINTESTINAL HAEMORRHAGE [None]
